APPROVED DRUG PRODUCT: OXTRIPHYLLINE PEDIATRIC
Active Ingredient: OXTRIPHYLLINE
Strength: 50MG/5ML
Dosage Form/Route: SYRUP;ORAL
Application: A088242 | Product #001
Applicant: MORTON GROVE PHARMACEUTICALS INC
Approved: Dec 5, 1983 | RLD: No | RS: No | Type: DISCN